FAERS Safety Report 5354675-3 (Version None)
Quarter: 2007Q2

REPORT INFORMATION
  Report Type: 
  Country: None (occurrence: None)
  Receive Date: 20070612
  Receipt Date: 20070605
  Transmission Date: 20071010
  Serious: Yes (Other)
  Sender: FDA-Public Use
  Company Number: US-ROXANE LABORATORIES, INC-2007-BP-07595RO

PATIENT
  Age: 92 Year
  Sex: Male

DRUGS (2)
  1. PREDNISONE TAB [Suspect]
     Indication: TEMPORAL ARTERITIS
     Dosage: 60 MG QD TAPER TO OFF OVER 10 MONTHS
     Route: 048
  2. METHOTREXATE [Suspect]
     Indication: TEMPORAL ARTERITIS
     Route: 048

REACTIONS (10)
  - ANAESTHESIA [None]
  - HERPES ZOSTER [None]
  - MALIGNANT MELANOMA [None]
  - MUSCULAR WEAKNESS [None]
  - NEUROENDOCRINE CARCINOMA OF THE SKIN [None]
  - NEUROMYOPATHY [None]
  - OSTEOPOROSIS [None]
  - SKIN ATROPHY [None]
  - SKIN CANCER [None]
  - SKIN ULCER [None]
